FAERS Safety Report 14879146 (Version 1)
Quarter: 2018Q2

REPORT INFORMATION
  Report Type: Spontaneous
  Country: CA (occurrence: CA)
  Receive Date: 20180511
  Receipt Date: 20180511
  Transmission Date: 20180711
  Serious: Yes (Hospitalization)
  Sender: FDA-Public Use
  Company Number: CA-TEVA-2018-CA-889532

PATIENT
  Age: 63 Year
  Sex: Female

DRUGS (13)
  1. ONE ALPHA [Concomitant]
     Active Substance: ALFACALCIDOL
  2. DOCUSATE SODIUM. [Concomitant]
     Active Substance: DOCUSATE SODIUM
  3. RENAVITE [Concomitant]
     Active Substance: ASCORBIC ACID\BIOTIN\CALCIUM PANTOTHENATE\CYANOCOBALAMIN\FOLIC ACID\NIACINAMIDE\PYRIDOXINE HYDROCHLORIDE\RIBOFLAVIN\THIAMINE MONONITRATE
  4. CALCIUM CARBONATE. [Concomitant]
     Active Substance: CALCIUM CARBONATE
  5. PANTOPRAZOLE [Concomitant]
     Active Substance: PANTOPRAZOLE
  6. ATORVASTATIN CALCIUM SANDOZ [Concomitant]
     Active Substance: ATORVASTATIN CALCIUM
  7. SYMBICORT [Concomitant]
     Active Substance: BUDESONIDE\FORMOTEROL FUMARATE DIHYDRATE
  8. VALACICLOVIR [Suspect]
     Active Substance: VALACYCLOVIR HYDROCHLORIDE
     Indication: HERPES ZOSTER
     Route: 048
  9. FERROUS FUMARATE SANDOZ [Concomitant]
  10. MAGNESIUM [Concomitant]
     Active Substance: MAGNESIUM
  11. ARANESP [Concomitant]
     Active Substance: DARBEPOETIN ALFA
     Route: 017
  12. AZATHIOPRINE (CANNOT EXCLUDE FROM TEVA PRODUCT) [Concomitant]
     Active Substance: AZATHIOPRINE
  13. CITALOPRAM [Concomitant]
     Active Substance: CITALOPRAM HYDROBROMIDE

REACTIONS (4)
  - Delirium [Unknown]
  - Neurotoxicity [Unknown]
  - Anticoagulation drug level above therapeutic [Unknown]
  - Confusional state [Unknown]
